FAERS Safety Report 8505974-5 (Version None)
Quarter: 2012Q3

REPORT INFORMATION
  Report Type: 
  Country: None (occurrence: None)
  Receive Date: 20120712
  Receipt Date: 20120703
  Transmission Date: 20120928
  Serious: Yes (Hospitalization)
  Sender: FDA-Public Use
  Company Number: BR-GLAXOSMITHKLINE-A0984033A

PATIENT
  Sex: Female
  Weight: 52 kg

DRUGS (4)
  1. OS-CAL + D [Suspect]
     Indication: PRODUCT USED FOR UNKNOWN INDICATION
     Dosage: 1TAB PER DAY
     Route: 065
     Dates: start: 20020101
  2. LISADOR [Suspect]
     Indication: PAIN
     Dosage: 30DROP UNKNOWN
     Route: 065
     Dates: start: 20020101
  3. PYRIDOXINE HCL [Suspect]
     Indication: PRODUCT USED FOR UNKNOWN INDICATION
     Dosage: 1TAB PER DAY
     Route: 065
     Dates: start: 20000101
  4. VALTREX [Suspect]
     Indication: HERPES ZOSTER INFECTION NEUROLOGICAL
     Dosage: 500MG AT NIGHT
     Route: 065
     Dates: start: 20020101

REACTIONS (1)
  - MYOCARDIAL INFARCTION [None]
